FAERS Safety Report 24140677 (Version 1)
Quarter: 2024Q3

REPORT INFORMATION
  Report Type: Spontaneous
  Country: AU (occurrence: AU)
  Receive Date: 20240726
  Receipt Date: 20240726
  Transmission Date: 20241017
  Serious: Yes (Hospitalization)
  Sender: BAXTER
  Company Number: AU-BAXTER-2024BAX021780

PATIENT
  Sex: Male

DRUGS (12)
  1. AMINO ACIDS, SOURCE UNSPECIFIED [Suspect]
     Active Substance: AMINO ACIDS, SOURCE UNSPECIFIED
     Indication: Parenteral nutrition
     Route: 065
  2. CALCIUM GLUCONATE [Suspect]
     Active Substance: CALCIUM GLUCONATE
     Indication: Parenteral nutrition
     Dosage: UNK
     Route: 065
  3. DEXTROSE [Suspect]
     Active Substance: DEXTROSE\DEXTROSE MONOHYDRATE
     Indication: Parenteral nutrition
     Dosage: (TPN)
     Route: 065
  4. WATER FOR INJECTION [Suspect]
     Active Substance: WATER
     Indication: Parenteral nutrition
     Dosage: (TPN)
     Route: 065
  5. UNSPECIFIED INGREDIENT [Suspect]
     Active Substance: UNSPECIFIED INGREDIENT
     Indication: Parenteral nutrition
     Dosage: ([M] IV PHOSPHATE (ORGANIC))
     Route: 065
  6. POTASSIUM ACETATE [Suspect]
     Active Substance: POTASSIUM ACETATE
     Indication: Parenteral nutrition
     Dosage: 5 MMOL/ML
     Route: 065
  7. SODIUM ACETATE [Suspect]
     Active Substance: SODIUM ACETATE
     Indication: Parenteral nutrition
     Dosage: 2 MMOL/ML
     Route: 065
  8. SODIUM CHLORIDE [Suspect]
     Active Substance: SODIUM CHLORIDE
     Indication: Parenteral nutrition
     Dosage: 4 MMOL/ML
     Route: 065
  9. MAGNESIUM SULFATE [Suspect]
     Active Substance: MAGNESIUM SULFATE\MAGNESIUM SULFATE HEPTAHYDRATE
     Indication: Parenteral nutrition
     Dosage: UNK
     Route: 065
  10. HEPARIN SODIUM [Suspect]
     Active Substance: HEPARIN SODIUM
     Indication: Parenteral nutrition
     Dosage: (500 UNITS/ML)
     Route: 065
  11. ZINC [Suspect]
     Active Substance: ZINC
     Indication: Parenteral nutrition
     Dosage: UNK
     Route: 065
  12. UNSPECIFIED INGREDIENT [Suspect]
     Active Substance: UNSPECIFIED INGREDIENT
     Indication: Parenteral nutrition
     Dosage: (PAEDIATRIC TRACE ELEMENTS)
     Route: 065

REACTIONS (1)
  - Blood glucose decreased [Recovered/Resolved]
